FAERS Safety Report 4621197-4 (Version None)
Quarter: 2005Q1

REPORT INFORMATION
  Report Type: 
  Country: None (occurrence: None)
  Receive Date: 20050328
  Receipt Date: 20050314
  Transmission Date: 20050727
  Serious: Yes (Death, Hospitalization)
  Sender: FDA-Public Use
  Company Number: 2005-00513

PATIENT
  Sex: Female

DRUGS (1)
  1. VELCADE [Suspect]
     Dosage: UNKNOWN
     Route: 065

REACTIONS (4)
  - BLOOD CREATININE INCREASED [None]
  - BRONCHITIS [None]
  - DEHYDRATION [None]
  - TUMOUR LYSIS SYNDROME [None]
